FAERS Safety Report 7270643-9 (Version None)
Quarter: 2011Q1

REPORT INFORMATION
  Report Type: 
  Country: None (occurrence: None)
  Receive Date: 20110202
  Receipt Date: 20110126
  Transmission Date: 20110831
  Serious: Yes (Other)
  Sender: FDA-Public Use
  Company Number: A0909491A

PATIENT
  Age: 65 Year
  Sex: Male

DRUGS (2)
  1. NO CONCURRENT MEDICATION [Concomitant]
  2. ZYBAN [Suspect]
     Route: 048

REACTIONS (6)
  - PALPITATIONS [None]
  - CHEST PAIN [None]
  - MALAISE [None]
  - INSOMNIA [None]
  - ASTHENIA [None]
  - HALLUCINATION [None]
